FAERS Safety Report 9379984 (Version 3)
Quarter: 2013Q4

REPORT INFORMATION
  Report Type: Spontaneous
  Country: US (occurrence: US)
  Receive Date: 20130702
  Receipt Date: 20131220
  Transmission Date: 20140711
  Serious: Yes (Life-Threatening, Hospitalization)
  Sender: FDA-Public Use
  Company Number: US-BAYER-2013-077698

PATIENT
  Age: 29 Year
  Sex: Female
  Weight: 90.7 kg

DRUGS (9)
  1. MIRENA [Suspect]
     Indication: CONTRACEPTION
     Dosage: 20 MCG/24HR, CONT
     Route: 015
     Dates: start: 20111027, end: 20130430
  2. DOCUSATE [Concomitant]
  3. FERROUS FUMARATE [Concomitant]
  4. IBUPROFEN [Concomitant]
  5. LEVOTHYROXINE [Concomitant]
  6. MULTIVITAMIN [Concomitant]
  7. INSULIN ASPART [Concomitant]
  8. BACTRIM [Concomitant]
     Dosage: UNK UNK, ONCE
     Route: 048
  9. HYDROCODONE/ACETAMINOPHEN [Concomitant]
     Dosage: 10 MG, UNK

REACTIONS (13)
  - Uterine perforation [None]
  - Small intestinal obstruction [None]
  - Scar [None]
  - Abdominal pain [None]
  - Malaise [None]
  - Injury [None]
  - Emotional distress [None]
  - Vomiting [None]
  - Abdominal pain upper [None]
  - Menorrhagia [None]
  - Back pain [None]
  - Aphagia [None]
  - Activities of daily living impaired [None]
